FAERS Safety Report 5123309-5 (Version None)
Quarter: 2006Q4

REPORT INFORMATION
  Report Type: 
  Country: None (occurrence: None)
  Receive Date: 20061009
  Receipt Date: 20060927
  Transmission Date: 20070319
  Serious: Yes (Hospitalization, Disabling)
  Sender: FDA-Public Use
  Company Number: US-SANOFI-SYNTHELABO-A03200605963

PATIENT
  Sex: Male
  Weight: 88 kg

DRUGS (23)
  1. AMBIEN [Suspect]
     Indication: DRUG USE FOR UNKNOWN INDICATION
     Dosage: 1 OR 2 TABLETS HS
     Route: 048
     Dates: start: 20050101, end: 20051221
  2. AMBIEN [Suspect]
     Route: 048
     Dates: start: 20051221
  3. DOXEPIN HCL [Suspect]
     Indication: DRUG USE FOR UNKNOWN INDICATION
     Dosage: 1 OR 2 TABLETS HS
     Route: 048
     Dates: start: 20050101
  4. DIAZEPAM [Suspect]
     Indication: DRUG USE FOR UNKNOWN INDICATION
     Route: 048
     Dates: start: 20050101, end: 20051221
  5. DIAZEPAM [Suspect]
     Route: 048
     Dates: start: 20051221
  6. HYDROCODONE BITARTRATE [Suspect]
     Indication: DRUG USE FOR UNKNOWN INDICATION
     Dosage: ^5/50^ 2 TABLETS HS
     Route: 048
     Dates: start: 20050801, end: 20051221
  7. SU-011,248 [Suspect]
     Indication: RENAL CELL CARCINOMA STAGE UNSPECIFIED
     Route: 048
     Dates: start: 20051026
  8. DOCUSATE SODIUM [Concomitant]
     Route: 048
     Dates: start: 20050101
  9. REMERON [Concomitant]
     Route: 048
     Dates: start: 20050101
  10. ACTIGALL [Concomitant]
     Route: 048
     Dates: start: 20050101
  11. FLOVENT [Concomitant]
     Route: 055
  12. SEREVENT [Concomitant]
     Route: 055
  13. MONTELUKAST [Concomitant]
     Route: 048
     Dates: start: 20050101
  14. ZANTAC [Concomitant]
     Route: 048
     Dates: start: 20050101
  15. PROSCAR [Concomitant]
     Route: 048
     Dates: start: 20050101
  16. ATENOLOL [Concomitant]
     Route: 048
  17. TAMSULOSIN HCL [Concomitant]
     Route: 048
     Dates: start: 20050101
  18. ALTACE [Concomitant]
     Route: 048
     Dates: start: 20050101
  19. ZETIA [Concomitant]
     Route: 048
     Dates: start: 20050101
  20. LIPITOR [Concomitant]
     Route: 048
  21. LANTUS [Concomitant]
     Route: 058
  22. METFORMIN [Concomitant]
     Route: 048
  23. OXYCONTIN [Concomitant]
     Dosage: UNK
     Route: 048

REACTIONS (7)
  - CHILLS [None]
  - CONFUSIONAL STATE [None]
  - HYPOTENSION [None]
  - MENTAL STATUS CHANGES [None]
  - METABOLIC ENCEPHALOPATHY [None]
  - PYREXIA [None]
  - SOMNOLENCE [None]
